FAERS Safety Report 9858969 (Version 2)
Quarter: 2014Q1

REPORT INFORMATION
  Report Type: Spontaneous
  Country: JP (occurrence: JP)
  Receive Date: 20140131
  Receipt Date: 20140227
  Transmission Date: 20141002
  Serious: Yes (Hospitalization)
  Sender: FDA-Public Use
  Company Number: JP-BAYER-2014-015834

PATIENT
  Age: 67 Year
  Sex: Male

DRUGS (4)
  1. STIVARGA [Suspect]
     Indication: COLON CANCER
     Dosage: 120 MG, QD
     Route: 048
     Dates: start: 20140108, end: 20140112
  2. OLMETEC [Concomitant]
     Indication: HYPERTENSION
     Dosage: DAILY DOSE 10 MG
     Route: 048
  3. PROTECADIN [Concomitant]
     Indication: PROPHYLAXIS
     Dosage: DAILY DOSE 20 MG
     Route: 048
  4. MYSLEE [Concomitant]
     Dosage: DAILY DOSE 5 MG
     Route: 048

REACTIONS (5)
  - Cholecystitis [Recovering/Resolving]
  - Pyrexia [Recovering/Resolving]
  - Gallbladder pain [Recovering/Resolving]
  - C-reactive protein increased [Recovering/Resolving]
  - Blood bilirubin increased [Recovering/Resolving]
